FAERS Safety Report 11855604 (Version 1)
Quarter: 2015Q4

REPORT INFORMATION
  Report Type: Spontaneous
  Country: US (occurrence: US)
  Receive Date: 20151221
  Receipt Date: 20151221
  Transmission Date: 20160305
  Serious: No
  Sender: FDA-Public Use
  Company Number: US-PERRIGO-15US002421

PATIENT
  Age: 85 Year
  Sex: Female
  Weight: 55.33 kg

DRUGS (2)
  1. BACITRACIN OPHTHALMIC USP 500U/G 0S4 [Suspect]
     Active Substance: BACITRACIN
     Indication: EYELID INFECTION
     Dosage: THIN LAYER TO BOTH EYES, QD
     Route: 047
     Dates: start: 20150224, end: 20150225
  2. ZIOPTAN [Concomitant]
     Active Substance: TAFLUPROST
     Indication: GLAUCOMA
     Dosage: UNK
     Route: 065
     Dates: start: 2014

REACTIONS (1)
  - Eyelids pruritus [Not Recovered/Not Resolved]

NARRATIVE: CASE EVENT DATE: 20150225
